FAERS Safety Report 7356617-8 (Version None)
Quarter: 2011Q1

REPORT INFORMATION
  Report Type: 
  Country: None (occurrence: None)
  Receive Date: 20110316
  Receipt Date: 20110303
  Transmission Date: 20110831
  Serious: Yes (Hospitalization)
  Sender: FDA-Public Use
  Company Number: PHHY2011KR18052

PATIENT
  Sex: Female

DRUGS (2)
  1. ACLASTA [Suspect]
     Indication: OSTEOPOROSIS
     Dosage: 5 MG
     Route: 042
     Dates: start: 20081222
  2. ACLASTA [Suspect]
     Dosage: UNK MG, UNK

REACTIONS (2)
  - LOSS OF CONSCIOUSNESS [None]
  - CEREBRAL HAEMORRHAGE [None]
